FAERS Safety Report 5563152-6 (Version None)
Quarter: 2007Q4

REPORT INFORMATION
  Report Type: 
  Country: None (occurrence: None)
  Receive Date: 20071217
  Receipt Date: 20071213
  Transmission Date: 20080405
  Serious: Yes (Other)
  Sender: FDA-Public Use
  Company Number: B0498663A

PATIENT
  Age: 20 Year
  Sex: Female

DRUGS (5)
  1. PAXIL [Suspect]
     Indication: DRUG USE FOR UNKNOWN INDICATION
     Dosage: 40MG PER DAY
     Route: 048
     Dates: start: 20070901
  2. LUVOX [Concomitant]
     Dosage: 50MG PER DAY
     Route: 048
  3. TOLEDOMIN [Concomitant]
     Dosage: 50MG PER DAY
     Route: 048
  4. LEXOTAN [Concomitant]
     Route: 048
  5. FLUVOXAMINE MALEATE [Concomitant]

REACTIONS (4)
  - CONVULSION [None]
  - DRUG WITHDRAWAL SYNDROME [None]
  - NASOPHARYNGITIS [None]
  - PYREXIA [None]
